FAERS Safety Report 5247827-4 (Version None)
Quarter: 2007Q1

REPORT INFORMATION
  Report Type: 
  Country: None (occurrence: None)
  Receive Date: 20070227
  Receipt Date: 20070227
  Transmission Date: 20070707
  Serious: Yes (Hospitalization)
  Sender: FDA-Public Use
  Company Number: None

PATIENT
  Age: 45 Year
  Sex: Female
  Weight: 71.7 kg

DRUGS (3)
  1. VANCOMYCIN [Suspect]
     Indication: ABSCESS
     Dosage: 1500 MG QD IV
     Route: 042
     Dates: start: 20070125, end: 20070208
  2. VANCOMYCIN [Suspect]
     Indication: CELLULITIS
     Dosage: 1500 MG QD IV
     Route: 042
     Dates: start: 20070125, end: 20070208
  3. IBUPROFEN [Suspect]
     Indication: PAIN
     Dosage: 200 MG BID PO
     Route: 048
     Dates: start: 20070201, end: 20070212

REACTIONS (5)
  - DEHYDRATION [None]
  - DIARRHOEA [None]
  - NAUSEA [None]
  - RENAL FAILURE ACUTE [None]
  - VOMITING [None]
